FAERS Safety Report 6769159-5 (Version None)
Quarter: 2010Q2

REPORT INFORMATION
  Report Type: 
  Country: None (occurrence: None)
  Receive Date: 20100615
  Receipt Date: 20100608
  Transmission Date: 20101027
  Serious: Yes (Death)
  Sender: FDA-Public Use
  Company Number: US-CELGENEUS-163-20785-10051655

PATIENT
  Sex: Male

DRUGS (2)
  1. THALOMID [Suspect]
     Indication: MULTIPLE MYELOMA
     Route: 048
     Dates: start: 20100301
  2. BLOOD TRANSFUSION [Concomitant]
     Indication: DRUG USE FOR UNKNOWN INDICATION
     Route: 065
     Dates: start: 20100101

REACTIONS (1)
  - CARDIO-RESPIRATORY ARREST [None]
